FAERS Safety Report 17833206 (Version 5)
Quarter: 2021Q3

REPORT INFORMATION
  Report Type: Spontaneous
  Country: JP (occurrence: JP)
  Receive Date: 20200528
  Receipt Date: 20210810
  Transmission Date: 20211014
  Serious: Yes (Death, Hospitalization, Disabling)
  Sender: FDA-Public Use
  Company Number: JP-ROCHE-2609187

PATIENT
  Age: 8 Decade
  Sex: Male
  Weight: 58 kg

DRUGS (2)
  1. HEMLIBRA [Suspect]
     Active Substance: EMICIZUMAB-KXWH
     Indication: HAEMOPHILIA A WITHOUT INHIBITORS
     Route: 058
     Dates: start: 20190821, end: 20190911
  2. HEMLIBRA [Suspect]
     Active Substance: EMICIZUMAB-KXWH
     Route: 058
     Dates: start: 20190925

REACTIONS (7)
  - Pneumonia aspiration [Fatal]
  - Dysuria [Unknown]
  - Streptococcal sepsis [Recovered/Resolved]
  - Anorectal disorder [Unknown]
  - Bladder disorder [Unknown]
  - Spinal cord injury cervical [Not Recovered/Not Resolved]
  - Septic shock [Unknown]

NARRATIVE: CASE EVENT DATE: 202005
